FAERS Safety Report 5063413-3 (Version None)
Quarter: 2006Q3

REPORT INFORMATION
  Report Type: 
  Country: None (occurrence: None)
  Receive Date: 20060724
  Receipt Date: 20060711
  Transmission Date: 20061208
  Serious: Yes (Other)
  Sender: FDA-Public Use
  Company Number: GXKR2006FR03597

PATIENT
  Age: 68 Year
  Sex: Male

DRUGS (4)
  1. PREDNISONE [Suspect]
     Indication: TEMPORAL ARTERITIS
     Dosage: SEE IMAGE
     Dates: start: 20001001
  2. CLOPIDOGREL [Suspect]
     Indication: TRANSIENT ISCHAEMIC ATTACK
     Dosage: 75 MG, QD
  3. AZATHIOPRINE SODIUM [Concomitant]
  4. ACETYLSALICYLIC ACID SRT [Concomitant]

REACTIONS (6)
  - ARTERIOSCLEROSIS [None]
  - CAROTID ARTERY STENOSIS [None]
  - CAROTID ARTERY THROMBOSIS [None]
  - HAEMORRHAGE [None]
  - INFLAMMATION [None]
  - NECROSIS [None]
